FAERS Safety Report 5643103-6 (Version None)
Quarter: 2008Q1

REPORT INFORMATION
  Report Type: 
  Country: None (occurrence: None)
  Receive Date: 20080227
  Receipt Date: 20080227
  Transmission Date: 20080703
  Serious: Yes (Other)
  Sender: FDA-Public Use
  Company Number: None

PATIENT
  Age: 33 Year
  Sex: Female
  Weight: 53 kg

DRUGS (2)
  1. BOTOX [Suspect]
  2. TICE BCG [Suspect]

REACTIONS (2)
  - DYSPHONIA [None]
  - EAR INFECTION [None]
